FAERS Safety Report 24819373 (Version 1)
Quarter: 2025Q1

REPORT INFORMATION
  Report Type: Spontaneous
  Country: CN (occurrence: CN)
  Receive Date: 20250108
  Receipt Date: 20250108
  Transmission Date: 20250408
  Serious: Yes (Other)
  Sender: PFIZER
  Company Number: CN-002147023-NVSC2019CN002555

PATIENT
  Age: 70 Year
  Sex: Female

DRUGS (2)
  1. CRIZOTINIB [Suspect]
     Active Substance: CRIZOTINIB
     Indication: Lung adenocarcinoma
     Route: 048
     Dates: start: 201906
  2. CERITINIB [Suspect]
     Active Substance: CERITINIB
     Indication: Lung adenocarcinoma
     Route: 048
     Dates: start: 201907

REACTIONS (10)
  - Pleural effusion [Unknown]
  - Pericardial effusion [Unknown]
  - Liver injury [Unknown]
  - Neoplasm progression [Unknown]
  - Pyrexia [Unknown]
  - Arthralgia [Unknown]
  - Back pain [Unknown]
  - Bone pain [Unknown]
  - White blood cell count increased [Unknown]
  - C-reactive protein increased [Unknown]
